FAERS Safety Report 7764625-8 (Version None)
Quarter: 2011Q3

REPORT INFORMATION
  Report Type: 
  Country: None (occurrence: None)
  Receive Date: 20110921
  Receipt Date: 20110912
  Transmission Date: 20111222
  Serious: Yes (Life-Threatening, Other)
  Sender: FDA-Public Use
  Company Number: PHEH2011US03161

PATIENT
  Sex: Male

DRUGS (6)
  1. AMLODIPINE W/BENAZEPRIL [Concomitant]
     Indication: HYPERTENSION
     Dosage: 1 DF, QD
     Route: 048
  2. GLEEVEC [Suspect]
     Dosage: 300 MG, QD
     Route: 048
  3. LISINOPRIL [Concomitant]
     Indication: HYPERTENSION
     Dosage: 1 DF, QD
     Route: 048
  4. MULTI-VITAMINS [Concomitant]
     Dosage: 1 DF, QD
     Route: 048
  5. HYDROXYUREA [Suspect]
     Dosage: 500 MG, QD
     Route: 048
  6. OMEPRAZOLE [Concomitant]
     Indication: GASTROOESOPHAGEAL REFLUX DISEASE
     Route: 048

REACTIONS (9)
  - PAIN [None]
  - DRUG INEFFECTIVE [None]
  - WEIGHT DECREASED [None]
  - TREMOR [None]
  - DECREASED APPETITE [None]
  - BLOOD PRESSURE INCREASED [None]
  - WHITE BLOOD CELL COUNT INCREASED [None]
  - BODY TEMPERATURE INCREASED [None]
  - NAUSEA [None]
